FAERS Safety Report 5786489-4 (Version None)
Quarter: 2008Q2

REPORT INFORMATION
  Report Type: 
  Country: None (occurrence: None)
  Receive Date: 20080624
  Receipt Date: 20070705
  Transmission Date: 20081010
  Serious: No
  Sender: FDA-Public Use
  Company Number: US-ASTRAZENECA-2007UW16914

PATIENT
  Sex: Female

DRUGS (2)
  1. PULMICORT FLEXHALER [Suspect]
     Route: 055
     Dates: start: 20070704
  2. FORADIL [Concomitant]

REACTIONS (4)
  - DIZZINESS [None]
  - DRUG TOXICITY [None]
  - DYSPNOEA [None]
  - NERVOUSNESS [None]
